FAERS Safety Report 7061369-5 (Version None)
Quarter: 2010Q4

REPORT INFORMATION
  Report Type: 
  Country: None (occurrence: None)
  Receive Date: 20101026
  Receipt Date: 20101014
  Transmission Date: 20110411
  Serious: Yes (Hospitalization, Other)
  Sender: FDA-Public Use
  Company Number: PHHY2009JP37821

PATIENT
  Sex: Female
  Weight: 48 kg

DRUGS (6)
  1. EXJADE [Suspect]
     Indication: MYELODYSPLASTIC SYNDROME
     Dosage: 1000 MG
     Route: 048
     Dates: start: 20081110
  2. RED BLOOD CELLS, CONCENTRATED [Concomitant]
     Dosage: 2 UNITS EVERY WEEK
     Dates: start: 20090212
  3. DESFERAL [Concomitant]
     Dosage: UNK
     Route: 030
     Dates: start: 20090731
  4. ACLACINON [Concomitant]
     Dosage: 20 MG
     Dates: start: 20090907
  5. ACLACINON [Concomitant]
     Dosage: 20 MG
     Dates: start: 20091007
  6. CYLOCIDE [Concomitant]
     Indication: MYELODYSPLASTIC SYNDROME
     Dosage: 14 MG
     Dates: start: 20090907, end: 20090919

REACTIONS (2)
  - MALIGNANT NEOPLASM PROGRESSION [None]
  - SPINAL COMPRESSION FRACTURE [None]
